FAERS Safety Report 9454065 (Version 1)
Quarter: 2013Q3

REPORT INFORMATION
  Report Type: Report from Study
  Country: US (occurrence: US)
  Receive Date: 20130812
  Receipt Date: 20130812
  Transmission Date: 20140515
  Serious: Yes (Hospitalization)
  Sender: FDA-Public Use
  Company Number: US-ABBOTT-13P-163-1129326-00

PATIENT
  Age: 52 Year
  Sex: Female

DRUGS (8)
  1. HUMIRA [Suspect]
     Indication: CROHN^S DISEASE
     Dosage: TUESDAYS
     Route: 058
     Dates: start: 201301
  2. HUMIRA [Suspect]
     Route: 058
  3. ASACOL [Concomitant]
     Indication: CROHN^S DISEASE
     Route: 048
  4. PREDNISONE [Concomitant]
     Indication: CROHN^S DISEASE
     Route: 048
  5. FOLIC ACID [Concomitant]
     Indication: PRODUCT USED FOR UNKNOWN INDICATION
     Route: 048
  6. OMEGA 3 + VITAMIN D CHEWABLE [Concomitant]
     Indication: PRODUCT USED FOR UNKNOWN INDICATION
     Dosage: 1-3 TIMES DAILY
  7. FERROUS SULFATE [Concomitant]
     Indication: ANAEMIA
     Route: 048
  8. VITAMIN A [Concomitant]
     Indication: PRODUCT USED FOR UNKNOWN INDICATION

REACTIONS (2)
  - Diarrhoea haemorrhagic [Recovering/Resolving]
  - Alopecia [Unknown]
